FAERS Safety Report 5406691-0 (Version None)
Quarter: 2007Q3

REPORT INFORMATION
  Report Type: 
  Country: None (occurrence: None)
  Receive Date: 20070803
  Receipt Date: 20070803
  Transmission Date: 20080115
  Serious: Yes (Other)
  Sender: FDA-Public Use
  Company Number: None

PATIENT
  Sex: Female
  Weight: 75.7507 kg

DRUGS (1)
  1. CORGARD [Suspect]
     Indication: HYPERTENSION
     Dosage: P.O. 80MG DAILY
     Route: 048

REACTIONS (2)
  - DYSPNOEA [None]
  - PALPITATIONS [None]
